FAERS Safety Report 9302573 (Version 4)
Quarter: 2014Q1

REPORT INFORMATION
  Report Type: Spontaneous
  Country: DK (occurrence: None)
  Receive Date: 20130517
  Receipt Date: 20140103
  Transmission Date: 20141002
  Serious: Yes (Hospitalization)
  Sender: FDA-Public Use
  Company Number: 1709713

PATIENT
  Age: 53 Year
  Sex: Female

DRUGS (2)
  1. EPIRUBICIN HYDROCHLORIDE [Suspect]
     Indication: INVASIVE DUCTAL BREAST CARCINOMA
     Dosage: TOTAL
     Dates: start: 20101207, end: 20110124
  2. (CYCLOPHOSPHAMIDE) [Concomitant]

REACTIONS (5)
  - Atrial fibrillation [None]
  - Cardiomyopathy [None]
  - Dyspnoea at rest [None]
  - Cardiotoxicity [None]
  - Contralateral breast cancer [None]
